FAERS Safety Report 18530591 (Version 2)
Quarter: 2021Q1

REPORT INFORMATION
  Report Type: Spontaneous
  Country: US (occurrence: US)
  Receive Date: 20201121
  Receipt Date: 20210122
  Transmission Date: 20210419
  Serious: No
  Sender: FDA-Public Use
  Company Number: US-LUPIN PHARMACEUTICALS INC.-2020-08050

PATIENT
  Sex: Male

DRUGS (3)
  1. TRIAMCINOLONE [Concomitant]
     Active Substance: TRIAMCINOLONE
     Indication: TRANSIENT ACANTHOLYTIC DERMATOSIS
     Dosage: UNK
     Route: 061
  2. BETAMETHASONE DIPROPIONATE OINTMENT USP, 0.05% [Suspect]
     Active Substance: BETAMETHASONE DIPROPIONATE
     Indication: TRANSIENT ACANTHOLYTIC DERMATOSIS
     Dosage: UNK UNK, BID
     Route: 061
  3. CLOBETASOL PROPIONATE CREAM USP, 0.05 [Suspect]
     Active Substance: CLOBETASOL PROPIONATE
     Indication: TRANSIENT ACANTHOLYTIC DERMATOSIS
     Dosage: UNK UNK, BID
     Route: 061

REACTIONS (3)
  - Drug ineffective [Unknown]
  - Product physical consistency issue [Unknown]
  - Product use complaint [Unknown]
